FAERS Safety Report 15901377 (Version 11)
Quarter: 2021Q2

REPORT INFORMATION
  Report Type: Spontaneous
  Country: JP (occurrence: JP)
  Receive Date: 20190201
  Receipt Date: 20210416
  Transmission Date: 20210716
  Serious: Yes (Death, Hospitalization, Other)
  Sender: FDA-Public Use
  Company Number: JP-UNITED THERAPEUTICS-UNT-2019-001846

PATIENT
  Age: 48 Year
  Sex: Female
  Weight: 44.7 kg

DRUGS (22)
  1. FERROSTEC [Concomitant]
     Active Substance: SODIUM FERROUS CITRATE
     Indication: PRODUCT USED FOR UNKNOWN INDICATION
     Dosage: UNK
     Route: 048
     Dates: end: 20190107
  2. SAMSCA [Concomitant]
     Active Substance: TOLVAPTAN
     Indication: PRODUCT USED FOR UNKNOWN INDICATION
     Dosage: UNK
     Route: 048
     Dates: start: 20190114, end: 20201129
  3. REMODULIN [Suspect]
     Active Substance: TREPROSTINIL
     Dosage: 0.024 ?G/KG, CONTINUING
     Route: 058
  4. ADEMPAS [Concomitant]
     Active Substance: RIOCIGUAT
     Indication: PULMONARY ARTERIAL HYPERTENSION
     Dosage: UNK
     Route: 048
     Dates: start: 201809, end: 20201129
  5. FUROSEMIDE. [Concomitant]
     Active Substance: FUROSEMIDE
     Indication: PRODUCT USED FOR UNKNOWN INDICATION
     Dosage: UNK
     Route: 048
     Dates: end: 20201129
  6. SPIRONOLACTONE. [Concomitant]
     Active Substance: SPIRONOLACTONE
     Indication: PRODUCT USED FOR UNKNOWN INDICATION
     Dosage: UNK
     Route: 048
     Dates: end: 20201129
  7. REMODULIN [Suspect]
     Active Substance: TREPROSTINIL
     Indication: PORTOPULMONARY HYPERTENSION
     Dosage: 0.0345 ?G/KG, CONTINUING
     Route: 041
     Dates: end: 2020
  8. TAKECAB [Concomitant]
     Active Substance: VONOPRAZAN FUMARATE
     Indication: PROPHYLAXIS
     Dosage: UNK
     Route: 048
     Dates: start: 20190319, end: 20201129
  9. DILTIAZEM HYDROCHLORIDE R [Concomitant]
     Active Substance: DILTIAZEM HYDROCHLORIDE
     Indication: PROPHYLAXIS
     Dosage: UNK
     Route: 048
     Dates: start: 201909, end: 20201129
  10. PREDNISOLONE. [Concomitant]
     Active Substance: PREDNISOLONE
     Indication: PROPHYLAXIS
     Dosage: UNK
     Route: 048
     Dates: start: 20190729, end: 20200804
  11. TRICHLORMETHIAZIDE [Concomitant]
     Active Substance: TRICHLORMETHIAZIDE
     Indication: PROPHYLAXIS
     Dosage: UNK
     Route: 048
     Dates: start: 2019, end: 20201129
  12. REMODULIN [Suspect]
     Active Substance: TREPROSTINIL
     Dosage: 0.083 ?G/KG, CONTINUING
     Route: 041
     Dates: start: 2020, end: 20201204
  13. FUROSEMIDE. [Concomitant]
     Active Substance: FUROSEMIDE
     Indication: PRODUCT USED FOR UNKNOWN INDICATION
     Dosage: UNK
     Route: 065
     Dates: end: 20201129
  14. FERROUS SULFATE. [Concomitant]
     Active Substance: FERROUS SULFATE
     Indication: PRODUCT USED FOR UNKNOWN INDICATION
     Dosage: UNK
     Route: 048
     Dates: start: 20190108, end: 20201129
  15. K?SUPPLY [Concomitant]
     Active Substance: POTASSIUM CHLORIDE
     Indication: PROPHYLAXIS
     Dosage: UNK
     Route: 048
     Dates: start: 2019, end: 20201129
  16. ADEMPAS [Concomitant]
     Active Substance: RIOCIGUAT
     Indication: PORTOPULMONARY HYPERTENSION
  17. REMODULIN [Suspect]
     Active Substance: TREPROSTINIL
     Indication: PULMONARY ARTERIAL HYPERTENSION
     Dosage: UNK UNK, CONTINUING
     Route: 058
     Dates: start: 20181211
  18. REMODULIN [Suspect]
     Active Substance: TREPROSTINIL
     Indication: PORTOPULMONARY HYPERTENSION
     Dosage: 0.008 ?G/KG, CONTINUING
     Route: 058
     Dates: start: 201812
  19. REMODULIN [Suspect]
     Active Substance: TREPROSTINIL
     Dosage: 0.0525 ?G/KG, CONTINUING
     Route: 058
     Dates: start: 2019
  20. REMODULIN [Suspect]
     Active Substance: TREPROSTINIL
     Dosage: 0.0765 ?G/KG, CONTINUING
     Route: 058
     Dates: start: 2019, end: 20190423
  21. REMODULIN [Suspect]
     Active Substance: TREPROSTINIL
     Indication: PULMONARY ARTERIAL HYPERTENSION
     Dosage: 0.024 ?G/KG, CONTINUING (1.1 ML/H)
     Route: 041
     Dates: start: 20191126
  22. CALONAL [Concomitant]
     Active Substance: ACETAMINOPHEN
     Indication: PROPHYLAXIS
     Dosage: UNK
     Route: 048
     Dates: start: 20181211

REACTIONS (12)
  - Gastrointestinal haemorrhage [Fatal]
  - Hepatic encephalopathy [Recovering/Resolving]
  - Injection site pain [Recovering/Resolving]
  - Shock haemorrhagic [Fatal]
  - Pancytopenia [Fatal]
  - Cardiac failure [Recovering/Resolving]
  - Epistaxis [Fatal]
  - Abdominal distension [Not Recovered/Not Resolved]
  - Nausea [Recovering/Resolving]
  - Anaemia [Not Recovered/Not Resolved]
  - Cardiac failure [Not Recovered/Not Resolved]
  - Anaemia [Fatal]

NARRATIVE: CASE EVENT DATE: 20181214
